FAERS Safety Report 8817139 (Version 1)
Quarter: 2012Q4

REPORT INFORMATION
  Report Type: Spontaneous
  Country: US (occurrence: None)
  Receive Date: 20121003
  Receipt Date: 20121003
  Transmission Date: 20130627
  Serious: Yes (Other)
  Sender: FDA-Public Use
  Company Number: None

PATIENT
  Age: 88 Year
  Sex: Female
  Weight: 48.08 kg

DRUGS (2)
  1. VOLTAREN GEL [Suspect]
     Indication: OSTEOARTHRITIS
     Dosage: small amt, 4x per day, rub on thumbs
     Dates: start: 20120112, end: 20120514
  2. PENNSAID [Suspect]
     Indication: OSTEOARTHRITIS
     Dosage: 4 drops on thumb, 4x per day, on thumb
     Dates: start: 20120514, end: 201208

REACTIONS (8)
  - Migraine with aura [None]
  - Urticaria [None]
  - Rash pruritic [None]
  - Oedema peripheral [None]
  - Wheezing [None]
  - Oedema peripheral [None]
  - Oral candidiasis [None]
  - Laryngitis [None]
